FAERS Safety Report 10657703 (Version 2)
Quarter: 2014Q4

REPORT INFORMATION
  Report Type: Spontaneous
  Country: US (occurrence: US)
  Receive Date: 20141217
  Receipt Date: 20141217
  Transmission Date: 20150529
  Serious: No
  Sender: FDA-Public Use
  Company Number: US-GLAXOSMITHKLINE-A1052374A

PATIENT

DRUGS (2)
  1. RADIATION THERAPY [Suspect]
     Active Substance: RADIATION THERAPY
     Route: 065
  2. VOTRIENT [Suspect]
     Active Substance: PAZOPANIB HYDROCHLORIDE
     Indication: THYROID CANCER
     Dosage: 200 MG TABLET, UNKNOWN DOSING
     Route: 065

REACTIONS (2)
  - Pharyngeal oedema [Unknown]
  - Dysphagia [Unknown]
